FAERS Safety Report 17587245 (Version 3)
Quarter: 2020Q3

REPORT INFORMATION
  Report Type: Spontaneous
  Country: TH (occurrence: TH)
  Receive Date: 20200326
  Receipt Date: 20200722
  Transmission Date: 20201102
  Serious: Yes (Other)
  Sender: FDA-Public Use
  Company Number: NVSC2020TH076079

PATIENT
  Age: 54 Year
  Sex: Female

DRUGS (5)
  1. CERITINIB [Suspect]
     Active Substance: CERITINIB
     Dosage: 150 MG, BID (150 2X1)
     Route: 065
     Dates: start: 20180608
  2. CERITINIB [Suspect]
     Active Substance: CERITINIB
     Dosage: 150 MG, BID (150 2X1)
     Route: 065
     Dates: start: 20181228
  3. CERITINIB [Suspect]
     Active Substance: CERITINIB
     Dosage: 150 MG, QD (150 1X1)
     Route: 065
     Dates: start: 20190104
  4. LEVETIRACETAM. [Suspect]
     Active Substance: LEVETIRACETAM
     Indication: PRODUCT USED FOR UNKNOWN INDICATION
     Route: 065
  5. CERITINIB [Suspect]
     Active Substance: CERITINIB
     Indication: LUNG ADENOCARCINOMA
     Dosage: 450 MG (150 3X1)
     Route: 065
     Dates: start: 20170901

REACTIONS (14)
  - Leukopenia [Unknown]
  - Increased appetite [Unknown]
  - Acute kidney injury [Unknown]
  - Weight decreased [Unknown]
  - Aspartate aminotransferase abnormal [Unknown]
  - Performance status decreased [Unknown]
  - Diarrhoea [Unknown]
  - Alanine aminotransferase abnormal [Unknown]
  - Vomiting [Unknown]
  - Lipase abnormal [Unknown]
  - Nausea [Unknown]
  - AST/ALT ratio abnormal [Unknown]
  - Amylase abnormal [Unknown]
  - Therapeutic response decreased [Unknown]
